FAERS Safety Report 7680143-X (Version None)
Quarter: 2011Q3

REPORT INFORMATION
  Report Type: 
  Country: None (occurrence: None)
  Receive Date: 20110811
  Receipt Date: 20110811
  Transmission Date: 20111222
  Serious: Yes (Death)
  Sender: FDA-Public Use
  Company Number: None

PATIENT
  Sex: Female

DRUGS (1)
  1. TYSABRI [Suspect]
     Indication: MULTIPLE SCLEROSIS
     Dosage: 300MG 115ML/HR INTRAVENOUS
     Route: 042
     Dates: start: 20110806

REACTIONS (2)
  - DYSPNOEA [None]
  - CARDIO-RESPIRATORY ARREST [None]
